FAERS Safety Report 6043982-7 (Version None)
Quarter: 2009Q1

REPORT INFORMATION
  Report Type: 
  Country: None (occurrence: None)
  Receive Date: 20090120
  Receipt Date: 20090109
  Transmission Date: 20090719
  Serious: Yes (Death)
  Sender: FDA-Public Use
  Company Number: FR-PFIZER INC-2009154986

PATIENT

DRUGS (9)
  1. FARMORUBICIN [Suspect]
     Indication: GASTRIC CANCER
     Dosage: 90 MG, DAILY, CYCLIC
     Route: 042
     Dates: start: 20080208, end: 20080208
  2. CADUET [Suspect]
     Dosage: 1 DF, DAILY, EVERY DAY
     Route: 048
     Dates: end: 20080219
  3. ELOXATIN [Suspect]
     Indication: GASTRIC CANCER
     Dosage: 234 MG, DAILY, CYCLIC
     Route: 042
     Dates: start: 20080208, end: 20080208
  4. XELODA [Suspect]
     Indication: GASTRIC CANCER
     Dosage: 2300 MG, EVERY DAY
     Route: 048
     Dates: start: 20080208, end: 20080220
  5. EFFEXOR [Suspect]
     Dosage: 75 MG, BID, EVERY DAY
     Route: 048
     Dates: end: 20080221
  6. LENOGRASTIM [Suspect]
     Dosage: 1 DF, DAILY EVERY DAY
     Route: 058
     Dates: start: 20080210, end: 20080212
  7. PRIMPERAN TAB [Concomitant]
  8. ZOPHREN [Concomitant]
  9. METHYLPREDNISOLONE [Concomitant]

REACTIONS (1)
  - RENAL FAILURE ACUTE [None]
